FAERS Safety Report 11431076 (Version 1)
Quarter: 2015Q3

REPORT INFORMATION
  Report Type: Spontaneous
  Country: US (occurrence: US)
  Receive Date: 20150828
  Receipt Date: 20150828
  Transmission Date: 20151125
  Serious: Yes (Death)
  Sender: FDA-Public Use
  Company Number: US-ASTELLAS-2015US029386

PATIENT
  Age: 76 Year
  Sex: Male

DRUGS (1)
  1. XTANDI [Suspect]
     Active Substance: ENZALUTAMIDE
     Indication: PROSTATE CANCER
     Route: 065
     Dates: start: 20150811

REACTIONS (5)
  - Death [Fatal]
  - Confusional state [Unknown]
  - Hallucination [Unknown]
  - Disorientation [Unknown]
  - Tremor [Unknown]

NARRATIVE: CASE EVENT DATE: 20150819
